FAERS Safety Report 4319897-9 (Version None)
Quarter: 2004Q1

REPORT INFORMATION
  Report Type: 
  Country: None (occurrence: None)
  Receive Date: 20040319
  Receipt Date: 20040309
  Transmission Date: 20041129
  Serious: Yes (Other)
  Sender: FDA-Public Use
  Company Number: PHBS2004BR03410

PATIENT
  Age: 18 Year
  Sex: Female
  Weight: 57 kg

DRUGS (3)
  1. VISKEN [Suspect]
     Indication: HYPERTENSION
     Dosage: 10 MG, TID
     Route: 048
  2. APRESOLINE [Concomitant]
     Indication: HYPERTENSION
     Dosage: 1 DF, BID
     Route: 048
  3. METYLDOPA [Concomitant]
     Indication: HYPERTENSION
     Dosage: 1 DF, QID
     Route: 048

REACTIONS (4)
  - COMPLICATIONS OF MATERNAL EXPOSURE TO THERAPEUTIC DRUGS [None]
  - DRUG EXPOSURE DURING PREGNANCY [None]
  - DYSPNOEA [None]
  - TREMOR [None]
